FAERS Safety Report 23633201 (Version 4)
Quarter: 2024Q3

REPORT INFORMATION
  Report Type: Spontaneous
  Country: US (occurrence: US)
  Receive Date: 20240314
  Receipt Date: 20240726
  Transmission Date: 20241017
  Serious: Yes (Other)
  Sender: BLUEPRINT MEDICINES
  Company Number: US-Blueprint Medicines Corporation-2724

PATIENT
  Sex: Female

DRUGS (1)
  1. AYVAKIT [Suspect]
     Active Substance: AVAPRITINIB
     Indication: Systemic mastocytosis
     Route: 065
     Dates: start: 20231025

REACTIONS (7)
  - Appendicitis [Unknown]
  - Cholecystectomy [Unknown]
  - Pneumonia viral [Unknown]
  - Bronchitis bacterial [Unknown]
  - Influenza [Unknown]
  - Neutrophil count increased [Unknown]
  - Tryptase increased [Unknown]
